FAERS Safety Report 9016150 (Version 2)
Quarter: 2013Q2

REPORT INFORMATION
  Report Type: Report from Study
  Country: BR (occurrence: BR)
  Receive Date: 20130116
  Receipt Date: 20130520
  Transmission Date: 20140414
  Serious: Yes (Hospitalization)
  Sender: FDA-Public Use
  Company Number: BR-ABBOTT-13P-020-1035411-00

PATIENT
  Age: 82 Year
  Sex: Female
  Weight: 101 kg

DRUGS (5)
  1. HUMIRA [Suspect]
     Indication: RHEUMATOID ARTHRITIS
     Route: 058
     Dates: start: 20121221
  2. UNKNOWN MEDICATIONS [Concomitant]
     Indication: RHEUMATOID ARTHRITIS
  3. PROPRANOLOL [Concomitant]
     Indication: HYPERTENSION
  4. MODURETIC [Concomitant]
     Indication: HYPERTENSION
  5. MONOCORDIL [Concomitant]
     Indication: HYPERTENSION

REACTIONS (4)
  - Cardiomegaly [Recovering/Resolving]
  - Pulmonary embolism [Recovering/Resolving]
  - Pain in extremity [Recovering/Resolving]
  - Asthenia [Recovering/Resolving]
